FAERS Safety Report 7060053-1 (Version None)
Quarter: 2010Q4

REPORT INFORMATION
  Report Type: 
  Country: None (occurrence: None)
  Receive Date: 20101025
  Receipt Date: 20100726
  Transmission Date: 20110411
  Serious: No
  Sender: FDA-Public Use
  Company Number: US-BRISTOL-MYERS SQUIBB COMPANY-15209786

PATIENT
  Sex: Male

DRUGS (3)
  1. ABILIFY [Suspect]
     Dosage: DOSE INCREASED TO 10MG
  2. BUSPAR [Suspect]
  3. COGENTIN [Suspect]

REACTIONS (3)
  - AKATHISIA [None]
  - ANXIETY [None]
  - TREMOR [None]
